FAERS Safety Report 13213695 (Version 1)
Quarter: 2017Q1

REPORT INFORMATION
  Report Type: Report from Study
  Country: US (occurrence: US)
  Receive Date: 20170210
  Receipt Date: 20170210
  Transmission Date: 20170428
  Serious: Yes (Death, Hospitalization, Other)
  Sender: FDA-Public Use
  Company Number: US-MYLANLABS-2017M1007756

PATIENT

DRUGS (3)
  1. ERLOTINIB [Suspect]
     Active Substance: ERLOTINIB
     Indication: BREAST CANCER METASTATIC
     Dosage: 100MG ONCE PER DAY ON DAYS 5-21 (28 DAY CYCLE)
     Route: 048
  2. BENDAMUSTINE [Suspect]
     Active Substance: BENDAMUSTINE
     Dosage: 120 MG/M2 OVER 30 MINUTES ON DAYS 1 AND 2 OF EACH CYCLE (28 DAY CYCLE)
     Route: 042
  3. BENDAMUSTINE [Suspect]
     Active Substance: BENDAMUSTINE
     Indication: BREAST CANCER METASTATIC
     Dosage: 100 MG/M2 OVER 30 MINUTES ON DAYS 1 AND 2 OF EACH CYCLE (28 DAY CYCLE)
     Route: 042

REACTIONS (2)
  - Pneumocystis jirovecii pneumonia [Fatal]
  - Lymphopenia [Fatal]
